FAERS Safety Report 22030945 (Version 2)
Quarter: 2023Q1

REPORT INFORMATION
  Report Type: Spontaneous
  Country: FR (occurrence: FR)
  Receive Date: 20230223
  Receipt Date: 20230310
  Transmission Date: 20230418
  Serious: Yes (Other)
  Sender: FDA-Public Use
  Company Number: FR-TEVA-2023-FR-2858514

PATIENT
  Age: 9 Year
  Sex: Male

DRUGS (1)
  1. IBUPROFEN [Suspect]
     Active Substance: IBUPROFEN
     Indication: Analgesic intervention supportive therapy
     Dosage: 400 MG
     Route: 065

REACTIONS (6)
  - NSAID exacerbated respiratory disease [Unknown]
  - Anaphylactic reaction [Unknown]
  - Hypotonia [Unknown]
  - Vomiting [Unknown]
  - Urticaria [Unknown]
  - Asthma [Unknown]
